FAERS Safety Report 8421284-9 (Version None)
Quarter: 2012Q2

REPORT INFORMATION
  Report Type: 
  Country: None (occurrence: None)
  Receive Date: 20120323
  Receipt Date: 20110418
  Transmission Date: 20120825
  Serious: Yes (Hospitalization, Other)
  Sender: FDA-Public Use
  Company Number: 163-21880-11022266

PATIENT
  Age: 63 Year
  Sex: Male
  Weight: 236.8 kg

DRUGS (20)
  1. REVLIMID [Suspect]
     Indication: MULTIPLE MYELOMA
     Dosage: 25 MG, 1 IN 1 D, PO ; 10 MG, 1 IN 1 D, PO ; 25 MG, 1 IN 1 D, PO ; 15 MG, DAILY FOR 21 DAYS, PO
     Route: 048
     Dates: start: 20091001
  2. REVLIMID [Suspect]
     Indication: MULTIPLE MYELOMA
     Dosage: 25 MG, 1 IN 1 D, PO ; 10 MG, 1 IN 1 D, PO ; 25 MG, 1 IN 1 D, PO ; 15 MG, DAILY FOR 21 DAYS, PO
     Route: 048
     Dates: start: 20101201
  3. REVLIMID [Suspect]
     Indication: MULTIPLE MYELOMA
     Dosage: 25 MG, 1 IN 1 D, PO ; 10 MG, 1 IN 1 D, PO ; 25 MG, 1 IN 1 D, PO ; 15 MG, DAILY FOR 21 DAYS, PO
     Route: 048
     Dates: start: 20090606
  4. REVLIMID [Suspect]
     Indication: MULTIPLE MYELOMA
     Dosage: 25 MG, 1 IN 1 D, PO ; 10 MG, 1 IN 1 D, PO ; 25 MG, 1 IN 1 D, PO ; 15 MG, DAILY FOR 21 DAYS, PO
     Route: 048
     Dates: start: 20110201
  5. FENTANYL [Concomitant]
  6. BACTRIM [Concomitant]
  7. ZOLEDRONIC ACID [Concomitant]
  8. LEXAPRO [Concomitant]
  9. LORAZEPAM [Concomitant]
  10. VELCADE [Concomitant]
  11. VALTREX [Concomitant]
  12. ASPIRIN [Concomitant]
  13. FLEXERIL [Concomitant]
  14. PREDNISONE TAB [Concomitant]
  15. OXYCONTIN [Concomitant]
  16. AMBIEN [Concomitant]
  17. DILAUDID [Concomitant]
  18. SODIUM CHLORIDE [Concomitant]
  19. DEXAMETHASONE (DEXAMETHASONE) [Concomitant]
  20. GRANISETRON HCL (GRANISETRON) [Concomitant]

REACTIONS (4)
  - COMPRESSION FRACTURE [None]
  - NEUTROPENIA [None]
  - RASH PRURITIC [None]
  - BACK PAIN [None]
